FAERS Safety Report 8376083-3 (Version None)
Quarter: 2012Q2

REPORT INFORMATION
  Report Type: 
  Country: None (occurrence: None)
  Receive Date: 20120522
  Receipt Date: 20120517
  Transmission Date: 20120825
  Serious: Yes (Hospitalization, Other)
  Sender: FDA-Public Use
  Company Number: PHHY2009CA17733

PATIENT
  Sex: Female

DRUGS (3)
  1. SANDOSTATIN LAR [Suspect]
     Dosage: 20 MG, EVERY 4 WEEKS
     Route: 030
  2. SANDOSTATIN LAR [Suspect]
     Indication: ALBRIGHT'S DISEASE
     Dosage: 20 MG, QMO
     Route: 030
     Dates: start: 20070330
  3. SANDOSTATIN LAR [Suspect]
     Dosage: 10 MG, EVERY 4 WEEKS
     Route: 030

REACTIONS (28)
  - HYPOAESTHESIA ORAL [None]
  - BACK PAIN [None]
  - PAIN IN EXTREMITY [None]
  - DIZZINESS [None]
  - EAR DISORDER [None]
  - CONTUSION [None]
  - ARTHRALGIA [None]
  - INJECTION SITE PAIN [None]
  - FATIGUE [None]
  - HYPOAESTHESIA [None]
  - SCOLIOSIS [None]
  - ABDOMINAL DISCOMFORT [None]
  - CARDIAC DISORDER [None]
  - ASTHENIA [None]
  - DISTURBANCE IN ATTENTION [None]
  - PALPITATIONS [None]
  - MUSCULOSKELETAL STIFFNESS [None]
  - ANXIETY [None]
  - MENSTRUATION IRREGULAR [None]
  - PARAESTHESIA [None]
  - HEART RATE IRREGULAR [None]
  - HEART RATE INCREASED [None]
  - ARRHYTHMIA [None]
  - ABDOMINAL SYMPTOM [None]
  - MALAISE [None]
  - GAIT DISTURBANCE [None]
  - MOBILITY DECREASED [None]
  - NAUSEA [None]
